FAERS Safety Report 5515825-9 (Version None)
Quarter: 2007Q4

REPORT INFORMATION
  Report Type: 
  Country: None (occurrence: None)
  Receive Date: 20071114
  Receipt Date: 20071109
  Transmission Date: 20080405
  Serious: Yes (Other)
  Sender: FDA-Public Use
  Company Number: CH-BRISTOL-MYERS SQUIBB COMPANY-13977632

PATIENT
  Age: 66 Year
  Sex: Female

DRUGS (4)
  1. TAXOL [Suspect]
     Indication: BREAST CANCER METASTATIC
     Route: 042
     Dates: start: 20070823, end: 20071025
  2. PHYSIOTENS [Concomitant]
  3. NEBILET [Concomitant]
     Indication: HYPERTENSION
     Dates: start: 20070823
  4. OMEPRAZOLE [Concomitant]
     Dates: start: 20071018

REACTIONS (2)
  - DIAPHRAGMATIC PARALYSIS [None]
  - PHRENIC NERVE PARALYSIS [None]
